FAERS Safety Report 8476117-1 (Version None)
Quarter: 2012Q2

REPORT INFORMATION
  Report Type: 
  Country: None (occurrence: None)
  Receive Date: 20120628
  Receipt Date: 20120626
  Transmission Date: 20120825
  Serious: Yes (Other)
  Sender: FDA-Public Use
  Company Number: PHEH2012US012015

PATIENT
  Sex: Female

DRUGS (2)
  1. DIOVAN [Suspect]
     Dosage: UNK
     Route: 048
  2. DIOVAN HCT [Suspect]
     Indication: BLOOD PRESSURE
     Dosage: 160/12.5 MG, QD
     Route: 048

REACTIONS (2)
  - ANAESTHETIC COMPLICATION [None]
  - GENITAL DISORDER FEMALE [None]
